FAERS Safety Report 7377212-0 (Version None)
Quarter: 2011Q1

REPORT INFORMATION
  Report Type: 
  Country: None (occurrence: None)
  Receive Date: 20110328
  Receipt Date: 20110317
  Transmission Date: 20110831
  Serious: No
  Sender: FDA-Public Use
  Company Number: US-BIOGENIDEC-2011BI010301

PATIENT
  Sex: Male

DRUGS (2)
  1. AVONEX [Suspect]
     Route: 030
     Dates: start: 20010101
  2. AVONEX [Suspect]
     Indication: MULTIPLE SCLEROSIS
     Route: 030

REACTIONS (5)
  - ASTHENIA [None]
  - NEUROPATHY PERIPHERAL [None]
  - HYPOAESTHESIA [None]
  - TREMOR [None]
  - INJECTION SITE INDURATION [None]
